FAERS Safety Report 6256036-1 (Version None)
Quarter: 2009Q2

REPORT INFORMATION
  Report Type: 
  Country: None (occurrence: None)
  Receive Date: 20090630
  Receipt Date: 20090630
  Transmission Date: 20091009
  Serious: Yes (Other)
  Sender: FDA-Public Use
  Company Number: None

PATIENT
  Sex: Female
  Weight: 60.782 kg

DRUGS (1)
  1. LYRICA [Suspect]

REACTIONS (3)
  - DRUG LEVEL BELOW THERAPEUTIC [None]
  - FALL [None]
  - VISION BLURRED [None]
